FAERS Safety Report 7013392-4 (Version None)
Quarter: 2010Q3

REPORT INFORMATION
  Report Type: 
  Country: None (occurrence: None)
  Receive Date: 20100924
  Receipt Date: 20100916
  Transmission Date: 20110219
  Serious: Yes (Other)
  Sender: FDA-Public Use
  Company Number: US-WYE-H17586810

PATIENT

DRUGS (3)
  1. TORISEL [Suspect]
     Dosage: UNKNOWN
     Route: 042
  2. DOXIL [Suspect]
     Dosage: UNKNOWN
     Route: 042
  3. AVASTIN [Suspect]
     Dosage: UNKNOWN

REACTIONS (2)
  - BURNS FIRST DEGREE [None]
  - EXCORIATION [None]
